FAERS Safety Report 4971987-3 (Version None)
Quarter: 2006Q2

REPORT INFORMATION
  Report Type: 
  Country: None (occurrence: None)
  Receive Date: 20060413
  Receipt Date: 20050623
  Transmission Date: 20061013
  Serious: Yes (Hospitalization)
  Sender: FDA-Public Use
  Company Number: US-MERCK-0506USA03399

PATIENT
  Age: 54 Year
  Sex: Male
  Weight: 95 kg

DRUGS (3)
  1. VIOXX [Suspect]
     Indication: ARTHRITIS
     Route: 048
     Dates: start: 20020101, end: 20040101
  2. VIOXX [Suspect]
     Indication: OSTEOARTHRITIS
     Route: 048
     Dates: start: 20020101, end: 20040101
  3. TYLENOL (CAPLET) [Concomitant]
     Indication: SLEEP DISORDER THERAPY
     Route: 065

REACTIONS (14)
  - CEREBELLAR INFARCTION [None]
  - DYSPHONIA [None]
  - GLUCOSE TOLERANCE IMPAIRED [None]
  - HYPERTENSION [None]
  - HYPERTRIGLYCERIDAEMIA [None]
  - NASAL TURBINATE HYPERTROPHY [None]
  - NEURALGIA [None]
  - OBSTRUCTIVE UROPATHY [None]
  - OSTEOARTHRITIS [None]
  - PARAESTHESIA [None]
  - PERIPHERAL SENSORY NEUROPATHY [None]
  - PROSTATIC SPECIFIC ANTIGEN INCREASED [None]
  - RHINITIS ALLERGIC [None]
  - VERTEBRAL INJURY [None]
